FAERS Safety Report 5868525-X (Version None)
Quarter: 2008Q3

REPORT INFORMATION
  Report Type: 
  Country: None (occurrence: None)
  Receive Date: 20080903
  Receipt Date: 20080822
  Transmission Date: 20090109
  Serious: Yes (Other)
  Sender: FDA-Public Use
  Company Number: US-NOVOPROD-278797

PATIENT
  Sex: Female
  Weight: 75.737 kg

DRUGS (13)
  1. VAGIFEM [Suspect]
     Indication: VULVOVAGINAL DRYNESS
     Dosage: UNKNOWN
     Route: 067
     Dates: start: 20030527, end: 20041201
  2. VAGIFEM [Suspect]
     Indication: ATROPHIC VULVOVAGINITIS
     Dosage: UNKNOWN
     Route: 067
     Dates: start: 20070201
  3. ESTRADERM [Suspect]
     Indication: PREMENSTRUAL SYNDROME
     Dosage: .05 MG, UNK
     Route: 062
     Dates: start: 19931203, end: 19940201
  4. ESTRADERM [Suspect]
     Route: 062
     Dates: start: 19980216
  5. PROVERA [Suspect]
     Indication: PREMENSTRUAL SYNDROME
     Dosage: 10 MG FOR 14 DAYS
     Route: 048
     Dates: start: 19941007, end: 19941025
  6. PROVERA [Suspect]
     Dosage: 10-12 DAY COURSE IF 6 WKS WITHOUT MENSES
     Route: 048
     Dates: start: 19951023
  7. PROVERA [Suspect]
     Dosage: 10 MG QD 1-14 OF MONTH
     Dates: start: 19960829, end: 19980428
  8. AYGESTIN [Suspect]
     Indication: MENORRHAGIA
     Dosage: 10 UNK, PRN
     Route: 048
     Dates: start: 19950302
  9. PREMPRO [Suspect]
     Indication: PREMENSTRUAL SYNDROME
     Dosage: 0.625/5 MG
     Route: 048
     Dates: start: 19980428, end: 19980825
  10. PREMPRO [Suspect]
     Dosage: 0.625/2.5 MG
     Dates: start: 19980825
  11. MEDROXYPROGESTERONE [Suspect]
     Indication: UTERINE HAEMORRHAGE
     Dosage: 10 MG, UNK
     Route: 048
     Dates: start: 19980629
  12. ESTRING [Suspect]
     Indication: VULVOVAGINAL DRYNESS
     Dosage: 2 MG, UNK
     Route: 067
     Dates: start: 20021101
  13. PREMARIN [Suspect]
     Indication: DRUG USE FOR UNKNOWN INDICATION

REACTIONS (1)
  - METASTASES TO BONE [None]
